FAERS Safety Report 23873916 (Version 1)
Quarter: 2024Q2

REPORT INFORMATION
  Report Type: Spontaneous
  Country: US (occurrence: None)
  Receive Date: 20240517
  Receipt Date: 20240517
  Transmission Date: 20240716
  Serious: Yes (Other)
  Sender: FDA-Public Use
  Company Number: None

PATIENT
  Age: 81 Year
  Sex: Female

DRUGS (6)
  1. PROLIA [Suspect]
     Active Substance: DENOSUMAB
     Indication: Senile osteoporosis
     Dosage: OTHER QUANTITY : 1 SYRINGE;?OTHER FREQUENCY : ONCE EVERY6 MONTHS;?
     Route: 058
     Dates: start: 20170113
  2. CALCIUM GLUC [Concomitant]
  3. MAGNESIUM [Concomitant]
  4. MULTIVITAMIN [Concomitant]
  5. PEPCID [Concomitant]
     Active Substance: FAMOTIDINE
  6. VITAMIN D3 [Concomitant]
     Active Substance: CHOLECALCIFEROL

REACTIONS (1)
  - Bladder cancer [None]

NARRATIVE: CASE EVENT DATE: 20240417
